FAERS Safety Report 23617373 (Version 1)
Quarter: 2024Q1

REPORT INFORMATION
  Report Type: Spontaneous
  Country: CN (occurrence: CN)
  Receive Date: 20240311
  Receipt Date: 20240311
  Transmission Date: 20240410
  Serious: Yes (Other)
  Sender: FDA-Public Use
  Company Number: None

PATIENT
  Age: 54 Year
  Sex: Female
  Weight: 60 kg

DRUGS (6)
  1. CYCLOPHOSPHAMIDE [Suspect]
     Active Substance: CYCLOPHOSPHAMIDE
     Indication: Invasive breast carcinoma
     Dosage: 0.80 G, ONE TIME IN ONE DAY, D1, DILUTED WITH 70 ML OF 0.9% SODIUM CHLORIDE, AS A PART OF TEC REGIME
     Route: 041
     Dates: start: 20240207, end: 20240207
  2. SODIUM CHLORIDE [Suspect]
     Active Substance: SODIUM CHLORIDE
     Indication: Medication dilution
     Dosage: (0.9%) 70 ML, ONE TIME IN ONE DAY, D1, USED TO DILUTE 0.80 G OF CYCLOPHOSPHAMIDE, AS A PART OF TEC R
     Route: 041
     Dates: start: 20240207, end: 20240207
  3. SODIUM CHLORIDE [Suspect]
     Active Substance: SODIUM CHLORIDE
     Dosage: (0.9%) 100 ML, ONE TIME IN ONE DAY, D1, USED TO DILUTE 140 MG OF EPIRUBICIN HYDROCHLORIDE, AS A PART
     Route: 041
     Dates: start: 20240207, end: 20240207
  4. SODIUM CHLORIDE [Suspect]
     Active Substance: SODIUM CHLORIDE
     Dosage: (0.9%) 80 ML, ONE TIME IN ONE DAY, D1, USED TO DILUTE 400 MG OF PACLITAXEL FOR INJECTION, AS A PART
     Route: 041
     Dates: start: 20240207, end: 20240207
  5. EPIRUBICIN HYDROCHLORIDE [Suspect]
     Active Substance: EPIRUBICIN HYDROCHLORIDE
     Indication: Invasive breast carcinoma
     Dosage: 140 MG, ONE TIME IN ONE DAY, D1, DILUTED WITH 100 ML OF 0.9% SODIUM CHLORIDE, AS A PART OF TEC REGIM
     Route: 041
     Dates: start: 20240207, end: 20240207
  6. PACLITAXEL [Suspect]
     Active Substance: PACLITAXEL
     Indication: Invasive breast carcinoma
     Dosage: 400 MG, ONE TIME IN ONE DAY, D1, DILUTED WITH 80 ML OF 0.9% SODIUM CHLORIDE, AS A PART OF TEC REGIME
     Route: 041
     Dates: start: 20240207, end: 20240207

REACTIONS (3)
  - Nausea [Unknown]
  - Vomiting [Recovered/Resolved]
  - White blood cell count decreased [Unknown]

NARRATIVE: CASE EVENT DATE: 20240207
